FAERS Safety Report 5887121-1 (Version None)
Quarter: 2008Q3

REPORT INFORMATION
  Report Type: 
  Country: None (occurrence: None)
  Receive Date: 20080917
  Receipt Date: 20080905
  Transmission Date: 20090109
  Serious: Yes (Death)
  Sender: FDA-Public Use
  Company Number: BR-PFIZER INC-2008075296

PATIENT
  Sex: Male

DRUGS (1)
  1. VFEND [Suspect]
     Indication: ASPERGILLOSIS
     Route: 048
     Dates: start: 20080401, end: 20080501

REACTIONS (1)
  - DEATH [None]
